FAERS Safety Report 6291454-7 (Version None)
Quarter: 2009Q3

REPORT INFORMATION
  Report Type: 
  Country: None (occurrence: None)
  Receive Date: 20090730
  Receipt Date: 20090721
  Transmission Date: 20100115
  Serious: Yes (Hospitalization)
  Sender: FDA-Public Use
  Company Number: ES-AVENTIS-200914231EU

PATIENT
  Age: 44 Year
  Sex: Female

DRUGS (3)
  1. SEGURIL                            /00032601/ [Suspect]
     Dosage: DOSE: UNK
     Route: 048
     Dates: start: 20081207
  2. NAPROXEN [Suspect]
     Indication: MIGRAINE
     Dosage: DOSE: UNK
     Route: 048
     Dates: start: 20050101, end: 20081217
  3. RIZATRIPTAN BENZOATE [Concomitant]
     Indication: MIGRAINE
     Route: 048
     Dates: start: 20050101, end: 20081217

REACTIONS (2)
  - RENAL FAILURE ACUTE [None]
  - RENAL TUBULAR DISORDER [None]
